FAERS Safety Report 7063127-4 (Version None)
Quarter: 2010Q4

REPORT INFORMATION
  Report Type: 
  Country: None (occurrence: None)
  Receive Date: 20101026
  Receipt Date: 20100518
  Transmission Date: 20110411
  Serious: Yes (Other)
  Sender: FDA-Public Use
  Company Number: US-PFIZER INC-2010043316

PATIENT
  Sex: Male
  Weight: 74.376 kg

DRUGS (9)
  1. LIPITOR [Suspect]
     Indication: HYPERCHOLESTEROLAEMIA
     Dosage: 10 MG, 1X/DAY
     Route: 048
     Dates: start: 20070101, end: 20091101
  2. AVALIDE [Concomitant]
     Dosage: 150 ONCE DAILY
  3. DIOVAN HCT [Concomitant]
     Dosage: 80
  4. ASPIRIN [Concomitant]
     Dosage: 81 MG, 1X/DAY
  5. ACYCLOVIR SODIUM [Concomitant]
     Dosage: 200 MG, 1X/DAY
  6. FLOVENT [Concomitant]
     Dosage: UNIT DOSE: 2; FREQUENCY: 2X/DAY,
  7. SYMBICORT [Concomitant]
     Dosage: UNIT DOSE: 2; FREQUENCY: 2X/DAY,
  8. TIMOLOL MALEATE [Concomitant]
     Route: 047
  9. LOTEMAX [Concomitant]
     Route: 047

REACTIONS (2)
  - HAEMORRHAGIC STROKE [None]
  - LOW DENSITY LIPOPROTEIN INCREASED [None]
